FAERS Safety Report 5609782-4 (Version None)
Quarter: 2008Q1

REPORT INFORMATION
  Report Type: 
  Country: None (occurrence: None)
  Receive Date: 20080131
  Receipt Date: 20071002
  Transmission Date: 20080703
  Serious: No
  Sender: FDA-Public Use
  Company Number: US-BAYER-200713682BWH

PATIENT
  Age: 83 Year
  Sex: Male

DRUGS (1)
  1. NEXAVAR [Suspect]
     Indication: BILE DUCT CANCER
     Dosage: TOTAL DAILY DOSE: 800 MG  UNIT DOSE: 200 MG
     Route: 048

REACTIONS (5)
  - BLOOD PRESSURE FLUCTUATION [None]
  - GLOSSITIS [None]
  - GLOSSODYNIA [None]
  - HEADACHE [None]
  - NAUSEA [None]
